FAERS Safety Report 6467456-4 (Version None)
Quarter: 2009Q4

REPORT INFORMATION
  Report Type: 
  Country: None (occurrence: None)
  Receive Date: 20091202
  Receipt Date: 20091123
  Transmission Date: 20100525
  Serious: Yes (Death)
  Sender: FDA-Public Use
  Company Number: GXKR2009US12732

PATIENT
  Age: 66 Year
  Sex: Male

DRUGS (1)
  1. PREDNISONE TAB [Suspect]
     Indication: STEVENS-JOHNSON SYNDROME
     Dosage: 80 MG/DAY
     Route: 065

REACTIONS (11)
  - ABDOMINAL PAIN [None]
  - GASTROINTESTINAL HAEMORRHAGE [None]
  - HYPOTENSION [None]
  - INTESTINAL ISCHAEMIA [None]
  - LACTIC ACIDOSIS [None]
  - LUNG INFILTRATION [None]
  - NAUSEA [None]
  - SEPTIC SHOCK [None]
  - STRONGYLOIDIASIS [None]
  - TACHYCARDIA [None]
  - VOMITING [None]
